FAERS Safety Report 6285248-6 (Version None)
Quarter: 2009Q3

REPORT INFORMATION
  Report Type: 
  Country: None (occurrence: None)
  Receive Date: 20090727
  Receipt Date: 20090720
  Transmission Date: 20100115
  Serious: Yes (Other)
  Sender: FDA-Public Use
  Company Number: GB-TEVA-202904ISR

PATIENT
  Age: 51 Year
  Sex: Female

DRUGS (2)
  1. PHENYTOIN [Suspect]
     Indication: EPILEPSY
  2. PREGABALIN [Suspect]
     Indication: EPILEPSY

REACTIONS (1)
  - HALLUCINATION [None]
